FAERS Safety Report 15722052 (Version 2)
Quarter: 2019Q1

REPORT INFORMATION
  Report Type: Spontaneous
  Country: JP (occurrence: JP)
  Receive Date: 20181214
  Receipt Date: 20190221
  Transmission Date: 20190417
  Serious: Yes (Hospitalization, Other)
  Sender: FDA-Public Use
  Company Number: JP-AMGEN-JPNSP2018152461

PATIENT
  Age: 60 Year
  Sex: Female

DRUGS (10)
  1. NEXIUM [Concomitant]
     Active Substance: ESOMEPRAZOLE MAGNESIUM
     Indication: COLLAGEN DISORDER
     Dosage: 20 UNK, QD
     Route: 048
  2. PANTOSIN [Concomitant]
     Active Substance: PANTETHINE
     Dosage: 100 UNK, TID
     Route: 048
  3. CALFINA [Concomitant]
     Active Substance: ALFACALCIDOL
     Indication: OSTEOPOROSIS
     Dosage: 0.5 UNK, QD
     Route: 048
  4. CARELOAD [Concomitant]
     Active Substance: BERAPROST SODIUM
     Indication: COLLAGEN DISORDER
     Dosage: 60 UNK, BID
     Route: 048
  5. IMURAN [Concomitant]
     Active Substance: AZATHIOPRINE
     Indication: COLLAGEN DISORDER
     Dosage: 50 UNK, QD
     Route: 048
  6. MIYA-BM [Concomitant]
     Active Substance: CLOSTRIDIUM BUTYRICUM SPORES STRAIN M-55
     Indication: COLLAGEN DISORDER
     Dosage: UNK UNK, TID
     Route: 048
  7. PRALIA [Suspect]
     Active Substance: DENOSUMAB
     Indication: OSTEOPOROSIS
     Dosage: 60 MG, UNK
     Route: 058
     Dates: start: 201405, end: 20180221
  8. MOSAPRIDE CITRATE [Concomitant]
     Active Substance: MOSAPRIDE CITRATE
     Indication: COLLAGEN DISORDER
     Dosage: 5 UNK, TID
     Route: 048
  9. PANTOSIN [Concomitant]
     Active Substance: PANTETHINE
     Indication: COLLAGEN DISORDER
     Dosage: 100 UNK, TID
     Route: 048
  10. PREDONINE [Concomitant]
     Active Substance: PREDNISOLONE
     Indication: COLLAGEN DISORDER
     Dosage: 3 UNK, QD
     Route: 048
     Dates: start: 20150408

REACTIONS (3)
  - Hypocalcaemia [Recovered/Resolved]
  - Spinal compression fracture [Unknown]
  - Hypokalaemia [Recovered/Resolved]

NARRATIVE: CASE EVENT DATE: 201803
